FAERS Safety Report 4304970-1 (Version None)
Quarter: 2004Q1

REPORT INFORMATION
  Report Type: 
  Country: None (occurrence: None)
  Receive Date: 20040226
  Receipt Date: 20040122
  Transmission Date: 20041129
  Serious: No
  Sender: FDA-Public Use
  Company Number: US-GLAXOSMITHKLINE-A0494721A

PATIENT
  Age: 44 Year
  Sex: Female

DRUGS (3)
  1. WELLBUTRIN XL [Suspect]
     Indication: DEPRESSION
     Dosage: 450MG PER DAY
     Route: 048
  2. SYNTHROID [Concomitant]
     Route: 065
  3. DIOVAN [Concomitant]

REACTIONS (3)
  - INSOMNIA [None]
  - TINNITUS [None]
  - WEIGHT INCREASED [None]
